FAERS Safety Report 15007677 (Version 1)
Quarter: 2018Q2

REPORT INFORMATION
  Report Type: Spontaneous
  Country: DE (occurrence: DE)
  Receive Date: 20180613
  Receipt Date: 20180613
  Transmission Date: 20180711
  Serious: Yes (Life-Threatening, Other)
  Sender: FDA-Public Use
  Company Number: DE-ASCEND THERAPEUTICS-2049352

PATIENT
  Age: 40 Year
  Sex: Female

DRUGS (4)
  1. UTROGESTAN [Suspect]
     Active Substance: PROGESTERONE
     Route: 048
     Dates: start: 20171126
  2. ASS (ACETYLSALICYLIC ACID) [Concomitant]
     Active Substance: ASPIRIN
     Route: 048
     Dates: start: 2009
  3. ESTROGEL [Suspect]
     Active Substance: ESTRADIOL
     Indication: PREMATURE MENOPAUSE
     Route: 003
  4. CANNABIS (CANNABIS SATIVA) [Concomitant]
     Active Substance: CANNABIS SATIVA SUBSP. SATIVA FLOWERING TOP
     Route: 055
     Dates: start: 2014

REACTIONS (15)
  - Suicidal ideation [Recovered/Resolved]
  - Blood pressure fluctuation [Recovered/Resolved]
  - Myalgia [Recovered/Resolved]
  - Hot flush [Recovered/Resolved]
  - Drug resistance [Recovered/Resolved]
  - Hyperhidrosis [Recovered/Resolved]
  - Incontinence [Recovered/Resolved]
  - Blood pressure orthostatic [Recovered/Resolved]
  - Weight decreased [Recovered/Resolved]
  - Arthralgia [Recovered/Resolved]
  - Food intolerance [Recovered/Resolved]
  - Abdominal distension [Recovered/Resolved]
  - Alopecia [Recovered/Resolved]
  - Depression [Recovered/Resolved]
  - Nausea [Recovered/Resolved]

NARRATIVE: CASE EVENT DATE: 2013
